FAERS Safety Report 9098275 (Version 3)
Quarter: 2014Q1

REPORT INFORMATION
  Report Type: Spontaneous
  Country: AU (occurrence: AU)
  Receive Date: 20130213
  Receipt Date: 20140321
  Transmission Date: 20141002
  Serious: Yes (Hospitalization, Other)
  Sender: FDA-Public Use
  Company Number: AU-VERTEX PHARMACEUTICALS INC.-2013-001990

PATIENT
  Age: 43 Year
  Sex: Male
  Weight: 92.8 kg

DRUGS (3)
  1. INCIVO [Suspect]
     Indication: CHRONIC HEPATITIS C
     Dosage: 2 DOSES OF 375 MG
     Route: 048
     Dates: start: 20120921, end: 20121203
  2. RIBAVIRIN [Suspect]
     Indication: CHRONIC HEPATITIS C
     Dosage: UNK
     Route: 065
     Dates: start: 20120921, end: 20121207
  3. PEGYLATED INTERFERON [Suspect]
     Indication: CHRONIC HEPATITIS C
     Dosage: UNK
     Route: 065
     Dates: start: 20120921, end: 20121207

REACTIONS (1)
  - Erythema multiforme [Recovered/Resolved with Sequelae]
